FAERS Safety Report 4346506-5 (Version None)
Quarter: 2004Q2

REPORT INFORMATION
  Report Type: 
  Country: None (occurrence: None)
  Receive Date: 20040426
  Receipt Date: 20031002
  Transmission Date: 20050107
  Serious: No
  Sender: FDA-Public Use
  Company Number: US-BRISTOL-MYERS SQUIBB COMPANY-12400370

PATIENT

DRUGS (1)
  1. PARAPLATIN [Suspect]

REACTIONS (1)
  - STOMATITIS [None]
